FAERS Safety Report 8386364-5 (Version None)
Quarter: 2012Q2

REPORT INFORMATION
  Report Type: 
  Country: None (occurrence: None)
  Receive Date: 20120523
  Receipt Date: 20120510
  Transmission Date: 20120825
  Serious: Yes (Death, Hospitalization, Other)
  Sender: FDA-Public Use
  Company Number: AUR-APL-2009-00019

PATIENT
  Age: 73 Year
  Sex: Male

DRUGS (3)
  1. METFORMIN HCL [Suspect]
     Indication: PRODUCT USED FOR UNKNOWN INDICATION
     Dosage: 2 GM (1 GM,2 IN 1 D)
  2. PERINODOPRIL (PERINDOPRIL) [Concomitant]
  3. GLICLAZIDE (GLICLAZIDE) [Concomitant]

REACTIONS (7)
  - ACUTE PULMONARY OEDEMA [None]
  - OVERDOSE [None]
  - HYPOTENSION [None]
  - RENAL IMPAIRMENT [None]
  - DISSEMINATED INTRAVASCULAR COAGULATION [None]
  - COAGULOPATHY [None]
  - METABOLIC ACIDOSIS [None]
